FAERS Safety Report 5739255-X (Version None)
Quarter: 2008Q2

REPORT INFORMATION
  Report Type: 
  Country: None (occurrence: None)
  Receive Date: 20080512
  Receipt Date: 20080314
  Transmission Date: 20081010
  Serious: Yes (Other)
  Sender: FDA-Public Use
  Company Number: WWISSUE-162

PATIENT
  Age: 35 Year
  Sex: Female

DRUGS (3)
  1. DOXYCYCLINE HYCLATE [Suspect]
     Dosage: TWO DOSES/ORAL
     Route: 048
     Dates: start: 20080307
  2. WELLBUTRIN [Concomitant]
  3. IMPLANON (BIRTH CONTROL IMPLANT) [Concomitant]

REACTIONS (1)
  - OEDEMA PERIPHERAL [None]
